FAERS Safety Report 9341473 (Version 2)
Quarter: 2013Q2

REPORT INFORMATION
  Report Type: Spontaneous
  Country: US (occurrence: US)
  Receive Date: 20130611
  Receipt Date: 20130621
  Transmission Date: 20140414
  Serious: Yes (Death)
  Sender: FDA-Public Use
  Company Number: US-JNJFOC-20130522160

PATIENT
  Age: 72 Year
  Sex: Male
  Weight: 55.2 kg

DRUGS (16)
  1. DURAGESIC [Suspect]
     Indication: BACK PAIN
     Route: 062
     Dates: start: 20130425
  2. DURAGESIC [Suspect]
     Indication: BACK PAIN
     Route: 062
     Dates: start: 20130222
  3. ERLOTINIB [Suspect]
     Indication: NON-SMALL CELL LUNG CANCER
     Route: 065
     Dates: start: 20130214, end: 20130414
  4. HYDROCODONE [Suspect]
     Indication: PAIN
     Dosage: DOSE: 5/325 MG TWO TABLETS AS NEEDED
     Route: 065
  5. DOXYCYCLINE [Concomitant]
     Indication: RASH
     Route: 065
     Dates: start: 20130315
  6. SPIRIVA [Concomitant]
     Indication: ASTHMA
     Route: 065
     Dates: start: 2011
  7. SYMBICORT [Concomitant]
     Indication: ASTHMA
     Route: 065
     Dates: start: 2011
  8. PRO-AIR [Concomitant]
     Indication: ASTHMA
     Route: 065
     Dates: start: 2006
  9. NYSTATIN [Concomitant]
     Indication: FUNGAL INFECTION
     Route: 065
     Dates: start: 20130320
  10. TEMAZEPAM [Concomitant]
     Indication: INSOMNIA
     Route: 065
     Dates: start: 20121115
  11. VITAMIN C [Concomitant]
     Indication: SUPPLEMENTATION THERAPY
     Route: 065
     Dates: start: 20121115
  12. VITAMIN D3 [Concomitant]
     Indication: SUPPLEMENTATION THERAPY
     Route: 065
     Dates: start: 20130104
  13. ZOFRAN [Concomitant]
     Indication: NAUSEA
     Route: 065
     Dates: start: 20121126
  14. HYDROCODONE W/ACETAMINOPHEN [Concomitant]
     Indication: PAIN
     Route: 065
     Dates: start: 20130401
  15. IMODIUM [Concomitant]
     Indication: DIARRHOEA
     Route: 065
     Dates: start: 20130214
  16. MAGIC MOUTHWASH [Concomitant]
     Route: 065
     Dates: start: 20130301

REACTIONS (2)
  - Respiratory failure [Fatal]
  - Renal failure acute [Recovered/Resolved]
